FAERS Safety Report 13145414 (Version 3)
Quarter: 2018Q4

REPORT INFORMATION
  Report Type: Spontaneous
  Country: US (occurrence: US)
  Receive Date: 20170124
  Receipt Date: 20181205
  Transmission Date: 20190204
  Serious: No
  Sender: FDA-Public Use
  Company Number: US-PFIZER INC-2017030121

PATIENT
  Age: 61 Year
  Sex: Female
  Weight: 55.79 kg

DRUGS (2)
  1. LYRICA [Suspect]
     Active Substance: PREGABALIN
     Indication: FIBROMYALGIA
     Dosage: 200 MG, 3X/DAY
  2. LYRICA [Suspect]
     Active Substance: PREGABALIN
     Indication: NEURALGIA
     Dosage: 100 MG, THRICE A DAY

REACTIONS (4)
  - Off label use [Unknown]
  - Intentional product misuse [Unknown]
  - Prescribed overdose [Unknown]
  - Pain [Unknown]
